FAERS Safety Report 18133982 (Version 2)
Quarter: 2020Q3

REPORT INFORMATION
  Report Type: Spontaneous
  Country: SK (occurrence: SK)
  Receive Date: 20200811
  Receipt Date: 20200817
  Transmission Date: 20201103
  Serious: Yes (Death, Other)
  Sender: FDA-Public Use
  Company Number: SK-SHIRE-SK202025807

PATIENT

DRUGS (1)
  1. HYQVIA [Suspect]
     Active Substance: HUMAN IMMUNOGLOBULIN G\HYALURONIDASE RECOMBINANT HUMAN
     Indication: PRODUCT USED FOR UNKNOWN INDICATION
     Route: 065

REACTIONS (11)
  - Patent ductus arteriosus [Fatal]
  - Cyanosis [Fatal]
  - Congenital aortic atresia [Fatal]
  - Endocardial fibroelastosis [Fatal]
  - Foetal death [Fatal]
  - Dyspnoea [Fatal]
  - Foetal exposure during pregnancy [Unknown]
  - Tricuspid valve incompetence [Fatal]
  - Atrial septal defect [Fatal]
  - Mitral valve atresia [Fatal]
  - Hypoplastic left heart syndrome [Fatal]

NARRATIVE: CASE EVENT DATE: 20190410
